FAERS Safety Report 10602187 (Version 1)
Quarter: 2014Q4

REPORT INFORMATION
  Report Type: Spontaneous
  Country: US (occurrence: US)
  Receive Date: 20141124
  Receipt Date: 20141124
  Transmission Date: 20150529
  Serious: Yes (Other)
  Sender: FDA-Public Use
  Company Number: US-WATSON-2014-24932

PATIENT
  Age: 17 Year
  Sex: Male

DRUGS (1)
  1. METHYLPREDNISOLONE (WATSON LABORATORIES) [Suspect]
     Active Substance: METHYLPREDNISOLONE
     Indication: SPINAL CORD INJURY
     Dosage: UNK
     Route: 065

REACTIONS (2)
  - Mycoplasma test positive [Recovered/Resolved]
  - Mycoplasma infection [Recovered/Resolved]
